FAERS Safety Report 6030882-1 (Version None)
Quarter: 2009Q1

REPORT INFORMATION
  Report Type: 
  Country: None (occurrence: None)
  Receive Date: 20090106
  Receipt Date: 20081223
  Transmission Date: 20090719
  Serious: Yes (Other)
  Sender: FDA-Public Use
  Company Number: 230428M08USA

PATIENT
  Age: 45 Year
  Sex: Female

DRUGS (5)
  1. REBIF [Suspect]
     Indication: MULTIPLE SCLEROSIS
     Dosage: 44 MCG, 3 IN 1 WEEKS, SUBCUTANEOUS
     Route: 058
     Dates: start: 20050831, end: 20081121
  2. GABAPENTIN [Concomitant]
  3. TOPAMAX [Concomitant]
  4. AMITRIPTYLINE HYDROCHLORIDE [Concomitant]
  5. WELLBUTRIN [Concomitant]

REACTIONS (7)
  - ANTINUCLEAR ANTIBODY INCREASED [None]
  - HYPERSENSITIVITY [None]
  - INJECTION SITE ERYTHEMA [None]
  - INJECTION SITE PRURITUS [None]
  - INJECTION SITE REACTION [None]
  - INJECTION SITE WARMTH [None]
  - LEUKOCYTOCLASTIC VASCULITIS [None]
